FAERS Safety Report 8876880 (Version 1)
Quarter: 2012Q4

REPORT INFORMATION
  Report Type: Report from Study
  Country: US (occurrence: US)
  Receive Date: 20121029
  Receipt Date: 20121029
  Transmission Date: 20130627
  Serious: Yes (Other)
  Sender: FDA-Public Use
  Company Number: US-ABBOTT-12P-163-0998978-00

PATIENT
  Sex: Male
  Weight: 69.46 kg

DRUGS (7)
  1. HUMIRA [Suspect]
     Indication: PSORIATIC ARTHROPATHY
     Route: 058
     Dates: start: 200801
  2. METHOTREXATE [Concomitant]
     Indication: PSORIATIC ARTHROPATHY
  3. FOLIC ACID [Concomitant]
     Indication: VITAMIN SUPPLEMENTATION
  4. BYSTOLIC [Concomitant]
     Indication: HYPERTENSION
  5. AVODART [Concomitant]
     Indication: PROSTATOMEGALY
  6. SIMVASTATIN [Concomitant]
     Indication: HYPERLIPIDAEMIA
  7. FINASTERIDE [Concomitant]
     Indication: PROSTATOMEGALY

REACTIONS (7)
  - Contusion [Recovering/Resolving]
  - Fall [Recovering/Resolving]
  - Cervical vertebral fracture [Recovering/Resolving]
  - Pain [Recovering/Resolving]
  - Drug dose omission [Unknown]
  - Skin lesion [Unknown]
  - Scab [Unknown]
